FAERS Safety Report 13985402 (Version 1)
Quarter: 2017Q3

REPORT INFORMATION
  Report Type: Spontaneous
  Country: CA (occurrence: CA)
  Receive Date: 20170919
  Receipt Date: 20170919
  Transmission Date: 20171128
  Serious: Yes (Other)
  Sender: FDA-Public Use
  Company Number: CA-ORION CORPORATION ORION PHARMA-TREX2017-2061

PATIENT
  Age: 74 Year
  Sex: Female

DRUGS (2)
  1. METHOTREXATE (TRADE NAME UNKNOWN) [Suspect]
     Active Substance: METHOTREXATE
     Indication: RHEUMATOID ARTHRITIS
     Route: 048
  2. HYDROXYCHLOROQUINE [Concomitant]
     Active Substance: HYDROXYCHLOROQUINE
     Route: 065

REACTIONS (11)
  - Nausea [Unknown]
  - Arthralgia [Unknown]
  - Fatigue [Unknown]
  - Oral mucosal blistering [Unknown]
  - Root canal infection [Recovering/Resolving]
  - Pericardial effusion [Unknown]
  - Peripheral swelling [Unknown]
  - Diarrhoea [Unknown]
  - Productive cough [Unknown]
  - Stomatitis [Unknown]
  - Exostosis [Unknown]

NARRATIVE: CASE EVENT DATE: 20170809
